FAERS Safety Report 8590455-3 (Version None)
Quarter: 2012Q3

REPORT INFORMATION
  Report Type: 
  Country: None (occurrence: None)
  Receive Date: 20120813
  Receipt Date: 20120809
  Transmission Date: 20120928
  Serious: Yes (Death, Other)
  Sender: FDA-Public Use
  Company Number: GB-PFIZER INC-2012166405

PATIENT
  Age: 79 Year
  Sex: Female
  Weight: 55.45 kg

DRUGS (28)
  1. ZOCOR [Suspect]
     Dosage: UNK
     Route: 048
  2. PARACETAMOL [Concomitant]
  3. CLOTRIMAZOLE [Concomitant]
  4. GENTAMICIN [Concomitant]
  5. ADENOSINE [Concomitant]
  6. AMOXICILLIN AND CLAVULANATE POTASSIUM [Concomitant]
  7. TRAMADOL HCL [Concomitant]
  8. ACETAMINOPHEN [Concomitant]
  9. SPIRONOLACTONE [Suspect]
     Dosage: UNK
  10. BUMETANIDE [Suspect]
     Dosage: UNK
  11. FUROSEMIDE [Concomitant]
  12. CANDESARTAN CILEXETIL [Concomitant]
  13. METOCLOPRAMIDE [Concomitant]
  14. ADCAL-D3 [Concomitant]
  15. DICLOFENAC DIETHYLAMMONIUM SALT [Concomitant]
  16. OMEPRAZOLE [Concomitant]
  17. DALTEPARIN SODIUM [Concomitant]
  18. TEICOPLANIN [Concomitant]
     Indication: PNEUMONIA
  19. HEPARIN [Concomitant]
     Indication: PULMONARY EMBOLISM
  20. FORTISIP [Concomitant]
  21. METHOTREXATE [Concomitant]
     Indication: PRODUCT USED FOR UNKNOWN INDICATION
     Dosage: UNK
  22. FOLIC ACID [Concomitant]
  23. WARFARIN SODIUM [Concomitant]
     Indication: PULMONARY EMBOLISM
  24. CLARITHROMYCIN [Suspect]
     Indication: PNEUMONIA
     Dosage: 500 MG, 2X/DAY
     Route: 048
     Dates: start: 20120512, end: 20120521
  25. BISOPROLOL [Concomitant]
     Dosage: INCREASED TO 5MG ONCE DAILY.
  26. AMIODARONE HCL [Concomitant]
     Dosage: UNK
  27. ACETAMINOPHEN AND CODEINE PHOSPHATE [Concomitant]
  28. DIORALYTE [Concomitant]

REACTIONS (22)
  - RASH PRURITIC [None]
  - RENAL FAILURE ACUTE [None]
  - RASH GENERALISED [None]
  - FLUID OVERLOAD [None]
  - PETECHIAE [None]
  - STEVENS-JOHNSON SYNDROME [None]
  - HYPERSENSITIVITY [None]
  - PAIN [None]
  - ERYTHEMA [None]
  - OEDEMA PERIPHERAL [None]
  - DRY SKIN [None]
  - ECZEMA [None]
  - EXFOLIATIVE RASH [None]
  - BLOOD CREATININE INCREASED [None]
  - HAEMOGLOBIN DECREASED [None]
  - TOXIC EPIDERMAL NECROLYSIS [None]
  - RASH MACULO-PAPULAR [None]
  - ATRIAL FIBRILLATION [None]
  - SCAB [None]
  - PRURITUS [None]
  - SWELLING [None]
  - BLISTER [None]
